FAERS Safety Report 16714388 (Version 1)
Quarter: 2019Q3

REPORT INFORMATION
  Report Type: Spontaneous
  Country: US (occurrence: US)
  Receive Date: 20190819
  Receipt Date: 20190819
  Transmission Date: 20191004
  Serious: Yes (Other)
  Sender: FDA-Public Use
  Company Number: US-HBP-2019US018283

PATIENT
  Sex: Female

DRUGS (1)
  1. VALCHLOR [Suspect]
     Active Substance: MECHLORETHAMINE
     Indication: CUTANEOUS T-CELL LYMPHOMA
     Dosage: THIN FILM, DAILY
     Route: 061
     Dates: start: 201411

REACTIONS (4)
  - Application site irritation [Unknown]
  - Application site dryness [Unknown]
  - Application site reaction [Unknown]
  - Thrombosis [Unknown]
